FAERS Safety Report 21359009 (Version 3)
Quarter: 2023Q1

REPORT INFORMATION
  Report Type: Report from Study
  Country: US (occurrence: US)
  Receive Date: 20220921
  Receipt Date: 20230220
  Transmission Date: 20230418
  Serious: Yes (Life-Threatening, Hospitalization, Other)
  Sender: FDA-Public Use
  Company Number: US-ARGENX-2022-ARGX-US000942

PATIENT

DRUGS (5)
  1. VYVGART [Suspect]
     Active Substance: EFGARTIGIMOD ALFA-FCAB
     Indication: Myasthenia gravis
     Dosage: 10 MG/KG
  2. GAMMAGARD [Concomitant]
     Active Substance: HUMAN IMMUNOGLOBULIN G
     Indication: Product used for unknown indication
  3. Aza [Concomitant]
     Indication: Product used for unknown indication
  4. MESTINON [Concomitant]
     Active Substance: PYRIDOSTIGMINE BROMIDE
     Indication: Product used for unknown indication
  5. IMURAN [Concomitant]
     Active Substance: AZATHIOPRINE
     Indication: Product used for unknown indication
     Dosage: UNK MG/KG

REACTIONS (15)
  - Cardiac arrest [Unknown]
  - Fall [Unknown]
  - Multiple fractures [Unknown]
  - Nausea [Unknown]
  - Loss of consciousness [Recovered/Resolved]
  - Fatigue [Unknown]
  - Weight increased [Unknown]
  - Blood pressure decreased [Unknown]
  - Heart rate decreased [Unknown]
  - Blister [Unknown]
  - Incorrect dose administered [Recovered/Resolved]
  - Wrong schedule [Not Recovered/Not Resolved]
  - Myasthenia gravis [Recovered/Resolved]
  - Extravasation [Recovered/Resolved]
  - Cystitis [Unknown]

NARRATIVE: CASE EVENT DATE: 20220908
